FAERS Safety Report 17817455 (Version 1)
Quarter: 2020Q2

REPORT INFORMATION
  Report Type: Report from Study
  Country: IT (occurrence: IT)
  Receive Date: 20200522
  Receipt Date: 20200522
  Transmission Date: 20200714
  Serious: Yes (Other)
  Sender: FDA-Public Use
  Company Number: IT-TEVA-2020-IT-1238198

PATIENT
  Age: 82 Year
  Sex: Female

DRUGS (9)
  1. FOLIDEX  400 MICROGRAMMI COMPRESSE [Concomitant]
  2. ELIQUIS [Concomitant]
     Active Substance: APIXABAN
  3. ALLOPURINOL. [Suspect]
     Active Substance: ALLOPURINOL
     Route: 048
     Dates: start: 20191125, end: 20200108
  4. FUROSEMIDE. [Concomitant]
     Active Substance: FUROSEMIDE
     Indication: HYPERTENSION
  5. ATENOLOL. [Concomitant]
     Active Substance: ATENOLOL
     Indication: HYPERTENSION
  6. METFORMIN [Concomitant]
     Active Substance: METFORMIN HYDROCHLORIDE
     Indication: DIABETES MELLITUS
  7. CHLORTALIDONE [Concomitant]
     Active Substance: CHLORTHALIDONE
     Indication: HYPERTENSION
  8. BIVIS 20 MG/5 MG COMPRESSE RIVESTITE CON FILM [Concomitant]
     Indication: HYPERTENSION
  9. ROBILAS 20 MG COMPRESSE [Concomitant]

REACTIONS (3)
  - Pruritus [Recovering/Resolving]
  - Erythema [Recovering/Resolving]
  - Eyelid oedema [Recovering/Resolving]

NARRATIVE: CASE EVENT DATE: 20200115
